FAERS Safety Report 8244457 (Version 2)
Quarter: 2012Q4

REPORT INFORMATION
  Report Type: 
  Country: TR (occurrence: TR)
  Receive Date: 20111115
  Receipt Date: 20121213
  Transmission Date: 20130627
  Serious: Yes (Hospitalization)
  Sender: FDA-Public Use
  Company Number: TR-ROXANE LABORATORIES, INC.-2011-RO-01598RO

PATIENT
  Age: 20 Year
  Sex: Female

DRUGS (1)
  1. NAPROXEN [Suspect]
     Indication: DYSMENORRHOEA

REACTIONS (3)
  - Kounis syndrome [Recovered/Resolved]
  - Drug hypersensitivity [Recovered/Resolved]
  - Asthma [Recovered/Resolved]
